FAERS Safety Report 7161827-9 (Version None)
Quarter: 2010Q4

REPORT INFORMATION
  Report Type: 
  Country: None (occurrence: None)
  Receive Date: 20101215
  Receipt Date: 20100703
  Transmission Date: 20110411
  Serious: Yes (Other)
  Sender: FDA-Public Use
  Company Number: US-PFIZER INC-2010083689

PATIENT
  Sex: Female
  Weight: 67.1 kg

DRUGS (3)
  1. LYRICA [Suspect]
     Indication: PAIN
     Dosage: 50 MG, 3X/DAY
     Route: 048
     Dates: start: 20100401, end: 20100101
  2. LYRICA [Suspect]
     Dosage: 225 MG, 2X/DAY
     Route: 048
     Dates: start: 20100101, end: 20100702
  3. CELEBREX [Concomitant]
     Indication: ARTHRALGIA
     Dosage: UNK

REACTIONS (9)
  - DRY MOUTH [None]
  - DRY THROAT [None]
  - FLUID RETENTION [None]
  - OEDEMA [None]
  - PAIN [None]
  - SKIN DISORDER [None]
  - SOMNOLENCE [None]
  - WEIGHT INCREASED [None]
  - WHEEZING [None]
